FAERS Safety Report 5076620-0 (Version None)
Quarter: 2006Q3

REPORT INFORMATION
  Report Type: 
  Country: None (occurrence: None)
  Receive Date: 20060807
  Receipt Date: 20060724
  Transmission Date: 20061208
  Serious: Yes (Death, Hospitalization)
  Sender: FDA-Public Use
  Company Number: 2006071148

PATIENT
  Age: 48 Year
  Sex: Male
  Weight: 75 kg

DRUGS (6)
  1. IRINOTECAN HCL [Suspect]
     Indication: NON-SMALL CELL LUNG CANCER
     Dosage: 115 MG/M2 (115 MG, 1 IN 1 WK), INTRAVENOUS
     Route: 042
     Dates: start: 20060426, end: 20060502
  2. NEUTROGIN (LENOGRASTIM) [Suspect]
     Indication: NON-SMALL CELL LUNG CANCER
     Dosage: 100 MCG (1 IN 1 D), SUBCUTANEOUS
     Route: 058
     Dates: start: 20060508, end: 20060515
  3. CISPLATIN [Concomitant]
  4. INSULIN HUMAN (INSULIN HUMAN) [Concomitant]
  5. BROCIN-CODEINE (CODEINE PHOSPHATE, WILD CHERRY BARK) [Concomitant]
  6. MORPHINE SULFATE [Concomitant]

REACTIONS (11)
  - ACUTE RESPIRATORY DISTRESS SYNDROME [None]
  - BLOOD PH INCREASED [None]
  - BONE MARROW FAILURE [None]
  - COLD SWEAT [None]
  - DIARRHOEA [None]
  - INFECTION [None]
  - INTERSTITIAL LUNG DISEASE [None]
  - LUNG DISORDER [None]
  - MALIGNANT PLEURAL EFFUSION [None]
  - PLEURAL EFFUSION [None]
  - RESPIRATORY FAILURE [None]
